FAERS Safety Report 12539152 (Version 1)
Quarter: 2016Q3

REPORT INFORMATION
  Report Type: Spontaneous
  Country: US (occurrence: US)
  Receive Date: 20160708
  Receipt Date: 20160708
  Transmission Date: 20161109
  Serious: Yes (Other)
  Sender: FDA-Public Use
  Company Number: US-ACCORD-042226

PATIENT
  Age: 58 Year
  Sex: Female

DRUGS (4)
  1. CLARITHROMYCIN/CLARITHROMYCIN LACTOBIONATE [Concomitant]
     Indication: BENIGN FAMILIAL PEMPHIGUS
     Dosage: INTERMITTENTLY
     Route: 048
  2. METHOTREXATE. [Suspect]
     Active Substance: METHOTREXATE
     Indication: BENIGN FAMILIAL PEMPHIGUS
     Dosage: INITIALLY STARTED WITH 10 MG DOSE THEN 15 MG AND AGAIN DECREASED TO 10 MG PER WEEK
     Route: 048
  3. FOLIC ACID. [Concomitant]
     Active Substance: FOLIC ACID
     Indication: SUPPLEMENTATION THERAPY
     Dosage: EXCEPT ON THE DAY SHE TOOK METHOTREXATE
     Route: 048
  4. PREDNISONE. [Concomitant]
     Active Substance: PREDNISONE
     Indication: BENIGN FAMILIAL PEMPHIGUS
     Dosage: INTERMITTENTLY

REACTIONS (1)
  - Nasal septum perforation [Not Recovered/Not Resolved]
